FAERS Safety Report 5305500-8 (Version None)
Quarter: 2007Q2

REPORT INFORMATION
  Report Type: 
  Country: None (occurrence: None)
  Receive Date: 20070424
  Receipt Date: 20070417
  Transmission Date: 20071010
  Serious: Yes (Other)
  Sender: FDA-Public Use
  Company Number: FR-JNJFOC-20070201405

PATIENT
  Sex: Female
  Weight: 75 kg

DRUGS (5)
  1. DURAGESIC-100 [Suspect]
     Indication: PAIN
     Route: 062
  2. CORVASAL [Concomitant]
     Indication: ANGINA PECTORIS
  3. UNICORDIUM [Concomitant]
     Indication: ANGINA PECTORIS
  4. IRBESARTAN [Concomitant]
     Indication: HYPERTENSION
  5. CRESTOR [Concomitant]

REACTIONS (2)
  - DEPRESSION [None]
  - SUICIDAL IDEATION [None]
